FAERS Safety Report 5224484-4 (Version None)
Quarter: 2007Q1

REPORT INFORMATION
  Report Type: 
  Country: None (occurrence: None)
  Receive Date: 20070130
  Receipt Date: 20070119
  Transmission Date: 20070707
  Serious: Yes (Death, Hospitalization)
  Sender: FDA-Public Use
  Company Number: NO-MERCK-0701NOR00010

PATIENT
  Age: 75 Year
  Sex: Female
  Weight: 65 kg

DRUGS (9)
  1. FOSAMAX [Suspect]
     Indication: OSTEOPOROSIS
     Route: 048
  2. ACETAMINOPHEN [Concomitant]
     Route: 065
  3. OXAZEPAM [Concomitant]
     Route: 065
  4. CHLORAMPHENICOL [Concomitant]
     Route: 047
  5. TIOTROPIUM BROMIDE [Concomitant]
     Route: 065
  6. BUDESONIDE AND FORMOTEROL FUMARATE [Concomitant]
     Route: 065
  7. WARFARIN SODIUM [Suspect]
     Indication: ATRIAL FIBRILLATION
     Route: 065
     Dates: end: 20061225
  8. DIAZEPAM [Concomitant]
     Route: 065
  9. HYDROCHLOROTHIAZIDE AND IRBESARTAN [Concomitant]
     Route: 065

REACTIONS (4)
  - DEATH [None]
  - GASTROINTESTINAL HAEMORRHAGE [None]
  - MELAENA [None]
  - OESOPHAGEAL ULCER [None]
